FAERS Safety Report 6367315-1 (Version None)
Quarter: 2009Q3

REPORT INFORMATION
  Report Type: 
  Country: None (occurrence: None)
  Receive Date: 20090921
  Receipt Date: 20090908
  Transmission Date: 20100115
  Serious: Yes (Other)
  Sender: FDA-Public Use
  Company Number: FR-PFIZER INC-2009213753

PATIENT
  Age: 77 Year

DRUGS (7)
  1. XALATAN [Suspect]
     Indication: OPEN ANGLE GLAUCOMA
     Dosage: 1 DROP IN EACH EYE IN THE EVENING
     Route: 047
     Dates: start: 20010123
  2. ORELOX [Suspect]
     Indication: SINUSITIS
     Dosage: 2 DF, 2X/DAY
     Route: 048
     Dates: start: 20090417, end: 20090420
  3. COSOPT [Concomitant]
     Indication: GLAUCOMA
     Dosage: 1 DROP TWICE PER DAY
     Dates: start: 20080501
  4. SOLUPRED [Concomitant]
     Indication: SINUSITIS
     Dosage: 2 DF, 1X/DAY
     Route: 048
     Dates: start: 20090417, end: 20090420
  5. TANAKAN [Concomitant]
     Dosage: UNK
     Route: 048
     Dates: start: 20081101
  6. HAMAMELIS VIRGINIANA [Concomitant]
     Dosage: 5 DF, 2X/DAY
  7. PIASCLEDINE [Concomitant]
     Dosage: 1 DF, 1X/DAY

REACTIONS (1)
  - ANOSMIA [None]
